FAERS Safety Report 6161076-7 (Version None)
Quarter: 2009Q2

REPORT INFORMATION
  Report Type: 
  Country: None (occurrence: None)
  Receive Date: 20090420
  Receipt Date: 20090407
  Transmission Date: 20091009
  Serious: Yes (Life-Threatening, Hospitalization)
  Sender: FDA-Public Use
  Company Number: FR-PFIZER INC-2009194342

PATIENT

DRUGS (6)
  1. NEURONTIN [Suspect]
     Dosage: UNK
     Route: 048
     Dates: end: 20030101
  2. MEDIATOR [Suspect]
     Dosage: 3 DF, 1X/DAY
     Route: 048
     Dates: start: 20020101
  3. LIORESAL ^NOVARTIS^ [Suspect]
     Route: 048
  4. URBANYL [Suspect]
     Dosage: UNK
     Route: 048
  5. CORTANCYL [Suspect]
     Dosage: UNK
     Route: 048
  6. LANSOPRAZOLE [Suspect]
     Route: 048

REACTIONS (3)
  - AORTIC VALVE INCOMPETENCE [None]
  - MITRAL VALVE INCOMPETENCE [None]
  - TRICUSPID VALVE INCOMPETENCE [None]
